FAERS Safety Report 11981411 (Version 1)
Quarter: 2016Q1

REPORT INFORMATION
  Report Type: Report from Study
  Country: TH (occurrence: TH)
  Receive Date: 20160130
  Receipt Date: 20160130
  Transmission Date: 20160526
  Serious: Yes (Life-Threatening, Other)
  Sender: FDA-Public Use
  Company Number: TH-ACCORD-037324

PATIENT
  Age: 34 Year
  Sex: Female

DRUGS (6)
  1. DACTINOMYCIN [Suspect]
     Active Substance: DACTINOMYCIN
     Indication: GESTATIONAL TROPHOBLASTIC TUMOUR
     Dosage: DAILY FOR FIVE DAYS EVERY 21 DAYS
     Route: 042
  2. METHOTREXATE [Suspect]
     Active Substance: METHOTREXATE
     Indication: GESTATIONAL TROPHOBLASTIC TUMOUR
  3. FLUOROURACIL. [Suspect]
     Active Substance: FLUOROURACIL
     Indication: GESTATIONAL TROPHOBLASTIC TUMOUR
     Dosage: DAILY FOR FIVE DAYS EVERY 21 DAYS
     Route: 042
  4. IFOSFAMIDE. [Suspect]
     Active Substance: IFOSFAMIDE
     Indication: GESTATIONAL TROPHOBLASTIC TUMOUR
  5. ETOPOSIDE. [Suspect]
     Active Substance: ETOPOSIDE
     Indication: GESTATIONAL TROPHOBLASTIC TUMOUR
  6. CISPLATIN. [Suspect]
     Active Substance: CISPLATIN
     Indication: GESTATIONAL TROPHOBLASTIC TUMOUR

REACTIONS (5)
  - Drug hypersensitivity [Unknown]
  - Mucosal inflammation [Unknown]
  - Anaemia [Unknown]
  - Maternal exposure during pregnancy [Unknown]
  - Febrile neutropenia [Unknown]
